FAERS Safety Report 24330573 (Version 2)
Quarter: 2024Q3

REPORT INFORMATION
  Report Type: Report from Study
  Country: US (occurrence: None)
  Receive Date: 20240918
  Receipt Date: 20240918
  Transmission Date: 20241017
  Serious: Yes (Disabling, Other)
  Sender: ASTRAZENECA
  Company Number: 2024A205579

PATIENT
  Age: 80 Year
  Sex: Male

DRUGS (1)
  1. FASENRA [Suspect]
     Active Substance: BENRALIZUMAB
     Indication: Asthma
     Route: 058
     Dates: start: 20240411, end: 20240606

REACTIONS (5)
  - Eustachian tube obstruction [Unknown]
  - Hypoacusis [Unknown]
  - Drug hypersensitivity [Recovered/Resolved]
  - Sneezing [Unknown]
  - Ear congestion [Unknown]
